FAERS Safety Report 5853117-9 (Version None)
Quarter: 2008Q3

REPORT INFORMATION
  Report Type: 
  Country: None (occurrence: None)
  Receive Date: 20080821
  Receipt Date: 20080813
  Transmission Date: 20090109
  Serious: Yes (Hospitalization, Other)
  Sender: FDA-Public Use
  Company Number: PHHO2008BR02169

PATIENT
  Sex: Female
  Weight: 56.5 kg

DRUGS (3)
  1. TASIGNA [Suspect]
     Indication: CHRONIC MYELOID LEUKAEMIA
     Dosage: 800MG DAILY
     Route: 048
     Dates: start: 20080110, end: 20080208
  2. EYE WASH [Concomitant]
  3. EPITEZAN [Concomitant]

REACTIONS (6)
  - FACIAL PALSY [None]
  - GINGIVAL BLEEDING [None]
  - PARAESTHESIA [None]
  - PARAESTHESIA OF GENITAL FEMALE [None]
  - THROMBOCYTOPENIA [None]
  - VAGINAL HAEMORRHAGE [None]
